FAERS Safety Report 23082324 (Version 1)
Quarter: 2023Q4

REPORT INFORMATION
  Report Type: Spontaneous
  Country: US (occurrence: US)
  Receive Date: 20231019
  Receipt Date: 20231019
  Transmission Date: 20240110
  Serious: No
  Sender: FDA-Public Use
  Company Number: US-009507513-2310USA003940

PATIENT
  Age: 51 Year
  Sex: Male

DRUGS (8)
  1. CUBICIN [Suspect]
     Active Substance: DAPTOMYCIN
     Indication: Brain abscess
     Dosage: PARENTERAL THERAPY
  2. CUBICIN [Suspect]
     Active Substance: DAPTOMYCIN
     Indication: Parvimonas micra infection
  3. CUBICIN [Suspect]
     Active Substance: DAPTOMYCIN
     Indication: Fusobacterium test positive
  4. CUBICIN [Suspect]
     Active Substance: DAPTOMYCIN
     Indication: Actinomyces test positive
  5. MEROPENEM [Concomitant]
     Active Substance: MEROPENEM
     Indication: Parvimonas micra infection
     Dosage: PARENTERAL THERAPY
  6. MEROPENEM [Concomitant]
     Active Substance: MEROPENEM
     Indication: Fusobacterium test positive
  7. MEROPENEM [Concomitant]
     Active Substance: MEROPENEM
     Indication: Actinomyces test positive
  8. MEROPENEM [Concomitant]
     Active Substance: MEROPENEM
     Indication: Brain abscess

REACTIONS (1)
  - Product use in unapproved indication [Unknown]
